FAERS Safety Report 6046262-9 (Version None)
Quarter: 2009Q1

REPORT INFORMATION
  Report Type: 
  Country: None (occurrence: None)
  Receive Date: 20090122
  Receipt Date: 20090116
  Transmission Date: 20090719
  Serious: Yes (Hospitalization)
  Sender: FDA-Public Use
  Company Number: US-BRISTOL-MYERS SQUIBB COMPANY-14474100

PATIENT
  Age: 62 Year
  Sex: Female

DRUGS (3)
  1. ERBITUX [Suspect]
     Indication: HEAD AND NECK CANCER
     Dosage: 1 DOSAGEFORM = 8-10 DOSES.
  2. SYNTHROID [Concomitant]
  3. BENADRYL [Concomitant]
     Indication: PREMEDICATION

REACTIONS (1)
  - HAEMORRHAGE [None]
